FAERS Safety Report 10281702 (Version 1)
Quarter: 2014Q3

REPORT INFORMATION
  Report Type: Spontaneous
  Country: US (occurrence: US)
  Receive Date: 20140707
  Receipt Date: 20140707
  Transmission Date: 20150326
  Serious: No
  Sender: FDA-Public Use
  Company Number: US-PFIZER INC-2014185145

PATIENT
  Age: 57 Year
  Sex: Female
  Weight: 79.37 kg

DRUGS (4)
  1. JANUMET [Concomitant]
     Active Substance: METFORMIN HYDROCHLORIDE\SITAGLIPTIN PHOSPHATE
     Dosage: UNK
  2. LYRICA [Suspect]
     Active Substance: PREGABALIN
     Indication: DIABETIC NEUROPATHY
     Dosage: 75 MG, 2X/DAY
     Dates: start: 201404, end: 2014
  3. TIMOLOL [Concomitant]
     Active Substance: TIMOLOL
     Dosage: UNK
  4. HUMALOG 75/25 [Concomitant]
     Dosage: UNK

REACTIONS (4)
  - Dry mouth [Unknown]
  - Weight increased [Unknown]
  - Swelling [Unknown]
  - Speech disorder [Unknown]

NARRATIVE: CASE EVENT DATE: 201404
